FAERS Safety Report 10159317 (Version 3)
Quarter: 2014Q2

REPORT INFORMATION
  Report Type: Spontaneous
  Country: US (occurrence: None)
  Receive Date: 20140506
  Receipt Date: 20140528
  Transmission Date: 20141212
  Serious: Yes (Hospitalization, Other)
  Sender: FDA-Public Use
  Company Number: ADR-2013-01211

PATIENT
  Age: 49 Year
  Sex: Female

DRUGS (3)
  1. LIORESAL INTRATHECAL (BACLOFEN INJECTION) 2000 MCG/ML [Suspect]
     Indication: MUSCLE SPASTICITY
     Dosage: 613MCG/DAY
  2. UNSPECIFIED ^CHEMO^ MEDICATION [Suspect]
  3. UNSPECIFIED MUSCLE RELAXANTS [Suspect]

REACTIONS (8)
  - Feeling abnormal [None]
  - Pain [None]
  - Impaired work ability [None]
  - Gait disturbance [None]
  - Dysgeusia [None]
  - Dysgeusia [None]
  - Burning sensation [None]
  - Incorrect dose administered [None]
